FAERS Safety Report 6441499-9 (Version None)
Quarter: 2009Q4

REPORT INFORMATION
  Report Type: 
  Country: None (occurrence: None)
  Receive Date: 20091116
  Receipt Date: 20091109
  Transmission Date: 20100525
  Serious: Yes (Other)
  Sender: FDA-Public Use
  Company Number: B0600805A

PATIENT
  Sex: Female

DRUGS (7)
  1. VALTREX [Suspect]
     Indication: HERPES ZOSTER
     Dosage: 1000MG THREE TIMES PER DAY
     Route: 048
     Dates: start: 20091026, end: 20091027
  2. CILNIDIPINE [Concomitant]
     Indication: HYPERTENSION
     Dosage: 5MG PER DAY
     Route: 048
  3. DIART [Concomitant]
     Indication: CARDIAC FAILURE
     Dosage: 30MG PER DAY
     Route: 048
  4. ALESION [Concomitant]
     Indication: DERMATITIS ALLERGIC
     Route: 048
  5. TAKEPRON [Concomitant]
     Indication: GASTRIC ULCER
     Dosage: 15MG PER DAY
     Route: 048
     Dates: start: 20091026
  6. GASMOTIN [Concomitant]
     Indication: GASTRITIS
     Dosage: 10MG PER DAY
     Route: 048
  7. MYSLEE [Concomitant]
     Indication: INSOMNIA
     Dosage: 5MG PER DAY
     Route: 048

REACTIONS (8)
  - ALTERED STATE OF CONSCIOUSNESS [None]
  - DIZZINESS [None]
  - FEELING ABNORMAL [None]
  - HYPOAESTHESIA [None]
  - IMMOBILE [None]
  - NO THERAPEUTIC RESPONSE [None]
  - PAIN [None]
  - PAIN IN EXTREMITY [None]
